FAERS Safety Report 26188688 (Version 1)
Quarter: 2025Q4

REPORT INFORMATION
  Report Type: Spontaneous
  Country: RU (occurrence: RU)
  Receive Date: 20251222
  Receipt Date: 20251222
  Transmission Date: 20260118
  Serious: Yes (Other)
  Sender: ALEXION PHARMACEUTICALS
  Company Number: RU-ASTRAZENECA-202512EAF017420RU

PATIENT
  Age: 75 Year
  Sex: Male
  Weight: 70 kg

DRUGS (2)
  1. CRESTOR [Suspect]
     Active Substance: ROSUVASTATIN CALCIUM
     Dosage: 10 MILLIGRAM, QD
  2. METOPROLOL SUCCINATE [Suspect]
     Active Substance: METOPROLOL SUCCINATE
     Dosage: 100 MILLIGRAM, BID

REACTIONS (8)
  - Hepatotoxicity [Unknown]
  - Myopathy toxic [Unknown]
  - Muscular weakness [Unknown]
  - Blood pressure decreased [Unknown]
  - Off label use [Recovered/Resolved]
  - Blood bilirubin increased [Unknown]
  - Transaminases increased [Unknown]
  - Medication error [Not Recovered/Not Resolved]
